FAERS Safety Report 7200551-0 (Version None)
Quarter: 2010Q4

REPORT INFORMATION
  Report Type: 
  Country: None (occurrence: None)
  Receive Date: 20101228
  Receipt Date: 20101222
  Transmission Date: 20110411
  Serious: Yes (Other)
  Sender: FDA-Public Use
  Company Number: US-JNJFOC-20101207804

PATIENT
  Age: 63 Year
  Sex: Female
  Weight: 86.18 kg

DRUGS (2)
  1. TYLENOL (CAPLET) [Suspect]
     Route: 048
  2. TYLENOL (CAPLET) [Suspect]
     Indication: JOINT INJURY
     Route: 048

REACTIONS (1)
  - VAGINAL HAEMORRHAGE [None]
